FAERS Safety Report 8844343 (Version 1)
Quarter: 2012Q4

REPORT INFORMATION
  Report Type: 
  Country: ZA (occurrence: ZA)
  Receive Date: 20121017
  Receipt Date: 20121017
  Transmission Date: 20130627
  Serious: Yes (Other)
  Sender: FDA-Public Use
  Company Number: ZA-JNJFOC-20121007918

PATIENT
  Sex: Female

DRUGS (1)
  1. TRAMACET [Suspect]
     Indication: PRODUCT USED FOR UNKNOWN INDICATION
     Route: 048

REACTIONS (3)
  - Gastrointestinal disorder [Unknown]
  - Overdose [Unknown]
  - Treatment noncompliance [Unknown]
